FAERS Safety Report 7658785-7 (Version None)
Quarter: 2011Q3

REPORT INFORMATION
  Report Type: 
  Country: None (occurrence: None)
  Receive Date: 20110805
  Receipt Date: 20110805
  Transmission Date: 20111222
  Serious: Yes (Hospitalization)
  Sender: FDA-Public Use
  Company Number: None

PATIENT
  Age: 78 Year
  Sex: Male
  Weight: 87.5 kg

DRUGS (21)
  1. RITUXAN [Concomitant]
     Indication: CHRONIC LYMPHOCYTIC LEUKAEMIA
     Dosage: 800 MG
     Route: 041
  2. ASPIRIN [Concomitant]
  3. CEFADROXIL [Concomitant]
  4. OMEGA-3 FATTY ACIDS [Concomitant]
  5. VITAMIN D [Concomitant]
  6. METOPROLOL TARTRATE [Concomitant]
  7. POTASSIUM CHLORIDE [Concomitant]
  8. SIMVASTATIN [Concomitant]
  9. VALSARTAN [Concomitant]
  10. BENDAMUSTINE [Suspect]
     Indication: CHRONIC LYMPHOCYTIC LEUKAEMIA
     Dosage: 189 MG
     Route: 041
  11. MULTI-VITAMIN [Concomitant]
  12. NITROGLYCERIN [Concomitant]
  13. SAW PALMETTO [Concomitant]
  14. FURASEMIDE [Concomitant]
  15. FERROUS SULFATE TAB [Concomitant]
  16. IPRATROPIUM BROMIDE [Concomitant]
  17. ISOSORBIDE MONONITRATE [Concomitant]
  18. OMEPRAZOLE [Concomitant]
  19. HYDROCODONE BITARTRATE AND ACETAMINOPHEN [Concomitant]
  20. ALLOPURINOL [Concomitant]
  21. WARFARIN SODIUM [Concomitant]

REACTIONS (10)
  - HYPERKALAEMIA [None]
  - HAEMODIALYSIS [None]
  - BLOOD URIC ACID INCREASED [None]
  - FATIGUE [None]
  - TUMOUR LYSIS SYNDROME [None]
  - FLUID OVERLOAD [None]
  - DYSPNOEA [None]
  - BLOOD CREATININE INCREASED [None]
  - BRADYCARDIA [None]
  - CHEST PAIN [None]
